FAERS Safety Report 12323845 (Version 1)
Quarter: 2016Q2

REPORT INFORMATION
  Report Type: Spontaneous
  Country: GB (occurrence: GB)
  Receive Date: 20160502
  Receipt Date: 20160502
  Transmission Date: 20160815
  Serious: Yes (Other)
  Sender: FDA-Public Use
  Company Number: GB-PFIZER INC-2016235713

PATIENT
  Age: 27 Year
  Sex: Male
  Weight: 77 kg

DRUGS (4)
  1. AZITHROMYCIN ANHYDROUS. [Suspect]
     Active Substance: AZITHROMYCIN ANHYDROUS
     Dosage: 1 G, SINGLE (STAT DOSE)
     Route: 048
     Dates: start: 20160324, end: 20160324
  2. TRIUMEQ [Suspect]
     Active Substance: ABACAVIR SULFATE\DOLUTEGRAVIR SODIUM\LAMIVUDINE
     Indication: HIV TEST POSITIVE
     Dosage: [ABACAVIR 600MG]/ [DOLUTEGRAVIR SODIUM 50MG]/[LAMIVUDINE 300MG], 1X/DAY
     Route: 048
     Dates: start: 20160324, end: 20160407
  3. COLECALCIFEROL [Concomitant]
     Active Substance: CHOLECALCIFEROL
     Dosage: 800 IU, 1X/DAY
     Dates: start: 20160324
  4. SANATOGEN [Concomitant]
     Dosage: 1 DF, 1X/DAY

REACTIONS (7)
  - Cough [Recovering/Resolving]
  - Arthralgia [Recovering/Resolving]
  - Chills [Recovering/Resolving]
  - Dermatitis allergic [Recovering/Resolving]
  - Myalgia [Recovering/Resolving]
  - Headache [Recovering/Resolving]
  - Influenza like illness [Recovering/Resolving]

NARRATIVE: CASE EVENT DATE: 20160326
